FAERS Safety Report 18188321 (Version 11)
Quarter: 2021Q4

REPORT INFORMATION
  Report Type: Report from Study
  Country: None (occurrence: JP)
  Receive Date: 20200824
  Receipt Date: 20211019
  Transmission Date: 20220303
  Serious: Yes (Other)
  Sender: FDA-Public Use
  Company Number: JP-ABBVIE-20K-087-3536644-00

PATIENT
  Age: 76 Year
  Sex: Female
  Weight: 47.2 kg

DRUGS (19)
  1. VENCLEXTA [Suspect]
     Active Substance: VENETOCLAX
     Indication: B-cell small lymphocytic lymphoma refractory
     Route: 048
     Dates: start: 20200130, end: 2020
  2. VENCLEXTA [Suspect]
     Active Substance: VENETOCLAX
     Indication: B-cell small lymphocytic lymphoma recurrent
     Dosage: INCREASED
     Route: 048
     Dates: start: 20200206, end: 202002
  3. VENCLEXTA [Suspect]
     Active Substance: VENETOCLAX
     Route: 048
     Dates: start: 20200213, end: 202002
  4. VENCLEXTA [Suspect]
     Active Substance: VENETOCLAX
     Route: 048
     Dates: start: 20200226, end: 2020
  5. VENCLEXTA [Suspect]
     Active Substance: VENETOCLAX
     Route: 048
     Dates: start: 20200304, end: 2020
  6. VENCLEXTA [Suspect]
     Active Substance: VENETOCLAX
     Route: 048
     Dates: start: 2020, end: 202009
  7. VENCLEXTA [Suspect]
     Active Substance: VENETOCLAX
     Route: 048
     Dates: start: 20200915, end: 2020
  8. VENCLEXTA [Suspect]
     Active Substance: VENETOCLAX
     Route: 048
     Dates: start: 20210105
  9. CALCIUM CHLORIDE ANHYDROUS\POTASSIUM CHLORIDE\SODIUM CHLORIDE\SODIUM L [Suspect]
     Active Substance: CALCIUM CHLORIDE ANHYDROUS\POTASSIUM CHLORIDE\SODIUM CHLORIDE\SODIUM LACTATE
     Indication: Prophylaxis
     Route: 065
     Dates: end: 20200203
  10. ACYCLOVIR [Concomitant]
     Active Substance: ACYCLOVIR
     Indication: Infection prophylaxis
     Dates: start: 20191212
  11. FLUCONAZOLE [Concomitant]
     Active Substance: FLUCONAZOLE
     Indication: Infection prophylaxis
     Dates: start: 20200201
  12. RITUXIMAB [Concomitant]
     Active Substance: RITUXIMAB
     Indication: Chronic lymphocytic leukaemia
     Dates: start: 20200317, end: 2020
  13. RITUXIMAB [Concomitant]
     Active Substance: RITUXIMAB
     Dates: start: 20200414, end: 2020
  14. RITUXIMAB [Concomitant]
     Active Substance: RITUXIMAB
     Dates: start: 20200512, end: 2020
  15. RITUXIMAB [Concomitant]
     Active Substance: RITUXIMAB
     Dates: start: 20200623, end: 2020
  16. RITUXIMAB [Concomitant]
     Active Substance: RITUXIMAB
     Dates: start: 20200721
  17. FEBUXOSTAT [Concomitant]
     Active Substance: FEBUXOSTAT
     Indication: Prophylaxis
     Route: 048
  18. FEBUXOSTAT [Concomitant]
     Active Substance: FEBUXOSTAT
     Route: 048
  19. ISOTONIC SODIUM CHLORIDE SOLUTION [Concomitant]
     Active Substance: SODIUM CHLORIDE
     Indication: Prophylaxis

REACTIONS (4)
  - Pulmonary oedema [Recovered/Resolved]
  - Cardiac failure chronic [Unknown]
  - Blood urea abnormal [Unknown]
  - Blood creatinine increased [Unknown]

NARRATIVE: CASE EVENT DATE: 20200203
